FAERS Safety Report 18499006 (Version 1)
Quarter: 2020Q4

REPORT INFORMATION
  Report Type: Spontaneous
  Country: DE (occurrence: DE)
  Receive Date: 20201113
  Receipt Date: 20201113
  Transmission Date: 20210114
  Serious: Yes (Hospitalization)
  Sender: FDA-Public Use
  Company Number: DE-TEVA-2020-DE-1846752

PATIENT
  Age: 73 Year
  Sex: Female

DRUGS (7)
  1. ZOLPIDEM [Suspect]
     Active Substance: ZOLPIDEM TARTRATE
     Dosage: 5 MG, IN THE EVENING IF NECESSARY ABOUT 3X / WEEK
  2. SALBUTAMOL [Concomitant]
     Active Substance: ALBUTEROL
     Dosage: NEED,
     Route: 055
  3. CANDESARTAN/HYDROCHLOROTHIAZID [Suspect]
     Active Substance: CANDESARTAN CILEXETIL\HYDROCHLOROTHIAZIDE
     Dosage: 1 DOSAGE FORMS DAILY; 16|12.5 MG, 1-0-0-0,
  4. PREDNISOLON [Suspect]
     Active Substance: PREDNISOLONE
     Dosage: 20 MG
     Dates: start: 20191208, end: 20191210
  5. COLECALCIFEROL (VITAMIN D) [Concomitant]
     Dosage: 2 DOSAGE FORMS DAILY; 20,000 IU / WEEK, 1-0-0-01,
  6. PREDNISOLON [Suspect]
     Active Substance: PREDNISOLONE
     Dosage: 10 MILLIGRAM DAILY; 1-0-0-0
     Dates: start: 20191211, end: 20191213
  7. PREDNISOLON [Suspect]
     Active Substance: PREDNISOLONE
     Dosage: 30 MG
     Dates: start: 20191205, end: 20191207

REACTIONS (3)
  - Confusional state [Recovered/Resolved]
  - Memory impairment [Recovered/Resolved]
  - Disorientation [Recovered/Resolved]

NARRATIVE: CASE EVENT DATE: 201912
